FAERS Safety Report 24868522 (Version 1)
Quarter: 2025Q1

REPORT INFORMATION
  Report Type: Spontaneous
  Country: US (occurrence: US)
  Receive Date: 20250121
  Receipt Date: 20250121
  Transmission Date: 20250409
  Serious: Yes (Other)
  Sender: REGENERON
  Company Number: US-REGENERON PHARMACEUTICALS, INC.-2025-017532

PATIENT
  Sex: Male

DRUGS (8)
  1. EYLEA [Suspect]
     Active Substance: AFLIBERCEPT
     Indication: Macular degeneration
     Dosage: UNK, ONCE EVERY MONTH INTO RIGHT EYE; FORMULATION: UNK
     Route: 031
  2. EYLEA [Suspect]
     Active Substance: AFLIBERCEPT
     Dosage: UNK, ONCE EVERY MONTH INTO RIGHT EYE; FORMULATION: UNK
     Route: 031
  3. BIKTARVY [Concomitant]
     Active Substance: BICTEGRAVIR SODIUM\EMTRICITABINE\TENOFOVIR ALAFENAMIDE FUMARATE
     Indication: Product used for unknown indication
  4. ATORVASTATIN [Concomitant]
     Active Substance: ATORVASTATIN
     Indication: Product used for unknown indication
  5. LOSARTAN [Concomitant]
     Active Substance: LOSARTAN
     Indication: Product used for unknown indication
  6. OMEPRAZOLE [Concomitant]
     Active Substance: OMEPRAZOLE
     Indication: Product used for unknown indication
  7. PAROXETINE [Concomitant]
     Active Substance: PAROXETINE
     Indication: Product used for unknown indication
  8. AVASTIN [Concomitant]
     Active Substance: BEVACIZUMAB
     Indication: Product used for unknown indication

REACTIONS (15)
  - Lens dislocation [Unknown]
  - Cataract operation complication [Unknown]
  - Corneal transplant [Unknown]
  - Infection [Unknown]
  - Eye infection bacterial [Unknown]
  - Cataract [Unknown]
  - Eye disorder [Unknown]
  - Visual acuity reduced [Unknown]
  - COVID-19 [Unknown]
  - Superficial injury of eye [Unknown]
  - Visual field defect [Unknown]
  - Head injury [Unknown]
  - Bacterial infection [Unknown]
  - Altered visual depth perception [Unknown]
  - Product dose omission issue [Unknown]
